FAERS Safety Report 9284604 (Version 1)
Quarter: 2013Q2

REPORT INFORMATION
  Report Type: Spontaneous
  Country: US (occurrence: US)
  Receive Date: 20130513
  Receipt Date: 20130513
  Transmission Date: 20140414
  Serious: Yes (Hospitalization, Other)
  Sender: FDA-Public Use
  Company Number: US-B.I. PHARMACEUTICALS,INC./RIDGEFIELD-2013-BI-12256BP

PATIENT
  Age: 84 Year
  Sex: Female
  Weight: 62 kg

DRUGS (11)
  1. SPIRIVA [Suspect]
     Indication: CHRONIC OBSTRUCTIVE PULMONARY DISEASE
     Dosage: 18 MCG
     Route: 055
     Dates: start: 2010
  2. COMBIVENT [Suspect]
     Indication: CHRONIC OBSTRUCTIVE PULMONARY DISEASE
     Dosage: STRENGTH: 18 MCG / 103 MCG; DAILY DOSE: 72 MCG / 412
     Route: 055
     Dates: start: 2010
  3. NEXIUM [Concomitant]
     Indication: DYSPEPSIA
     Dosage: 40 MG
     Route: 048
  4. EFFEXOR [Concomitant]
     Indication: DEPRESSION
     Dosage: 150 MG
     Route: 048
  5. REGLAN [Concomitant]
     Indication: NAUSEA
     Dosage: 10 MG
     Route: 048
  6. REGLAN [Concomitant]
     Indication: VOMITING
  7. ZOLPIDEM [Concomitant]
     Indication: SLEEP DISORDER
     Dosage: 5 MG
     Route: 048
  8. OYCODONE / APAP [Concomitant]
     Indication: PAIN
     Route: 048
  9. CRESTOR [Concomitant]
     Indication: BLOOD CHOLESTEROL INCREASED
     Dosage: 20 MG
     Route: 048
  10. DIOVAN [Concomitant]
     Indication: HYPERTENSION
     Dosage: 320 MG
     Route: 048
  11. TOPROL XL [Concomitant]
     Dosage: 50 MG
     Route: 048

REACTIONS (6)
  - Lung neoplasm malignant [Not Recovered/Not Resolved]
  - Pneumonia [Recovered/Resolved]
  - Metastases to lymph nodes [Not Recovered/Not Resolved]
  - Pneumonia [Recovered/Resolved]
  - Central nervous system lesion [Not Recovered/Not Resolved]
  - Diaphragm neoplasm [Not Recovered/Not Resolved]
